FAERS Safety Report 4962365-1 (Version None)
Quarter: 2006Q2

REPORT INFORMATION
  Report Type: 
  Country: None (occurrence: None)
  Receive Date: 20060404
  Receipt Date: 20060313
  Transmission Date: 20061013
  Serious: Yes (Death, Life-Threatening, Hospitalization)
  Sender: FDA-Public Use
  Company Number: 2006SE01452

PATIENT
  Age: 34111 Day
  Sex: Female

DRUGS (9)
  1. BLOPRESS [Suspect]
     Indication: HYPERTENSION
     Route: 048
     Dates: start: 20051223, end: 20060220
  2. ALLOPURINOL [Suspect]
     Route: 048
     Dates: start: 20060114, end: 20060220
  3. SELBEX [Concomitant]
     Route: 048
     Dates: start: 20051223, end: 20060220
  4. CINALONG [Concomitant]
     Route: 048
     Dates: start: 20051223, end: 20060220
  5. FLUITRAN [Concomitant]
     Route: 048
     Dates: start: 20051225, end: 20060220
  6. DIART [Concomitant]
     Route: 048
     Dates: start: 20051231, end: 20060220
  7. ALDACTONE [Concomitant]
     Route: 048
     Dates: start: 20051231, end: 20060220
  8. CARBADOGEN [Concomitant]
     Route: 048
     Dates: start: 20051224, end: 20060220
  9. BENZALIN [Concomitant]
     Route: 048
     Dates: start: 20051224, end: 20060220

REACTIONS (5)
  - ACTIVITIES OF DAILY LIVING IMPAIRED [None]
  - AGRANULOCYTOSIS [None]
  - DECREASED APPETITE [None]
  - INFECTION [None]
  - RESPIRATORY FAILURE [None]
